FAERS Safety Report 18519920 (Version 1)
Quarter: 2020Q4

REPORT INFORMATION
  Report Type: Spontaneous
  Country: CN (occurrence: CN)
  Receive Date: 20201119
  Receipt Date: 20201119
  Transmission Date: 20210114
  Serious: Yes (Other)
  Sender: FDA-Public Use
  Company Number: CN-LUPIN PHARMACEUTICALS INC.-2020-08890

PATIENT
  Age: 82 Year
  Sex: Male
  Weight: 62 kg

DRUGS (13)
  1. FENTANYL. [Concomitant]
     Active Substance: FENTANYL
     Indication: ANALGESIC THERAPY
  2. IMIPENEM AND CILASTATIN [Interacting]
     Active Substance: CILASTATIN SODIUM\IMIPENEM
     Indication: PNEUMONIA
     Dosage: 1 DOSAGE FORM EVERY 8 HOURS
     Route: 065
  3. CEFOPERAZONE;SULBACTAM [Interacting]
     Active Substance: CEFOPERAZONE\SULBACTAM
     Indication: EVIDENCE BASED TREATMENT
     Dosage: 1 DOSAGE FORM EVERY 8 HOURS
     Route: 042
  4. CEFOPERAZONE;SULBACTAM [Interacting]
     Active Substance: CEFOPERAZONE\SULBACTAM
     Indication: PNEUMONIA
     Dosage: 1 DOSAGE FORM EVERY 12 HRS
     Route: 042
  5. NOREPINEPHRINE. [Concomitant]
     Active Substance: NOREPINEPHRINE
     Indication: HAEMODYNAMIC INSTABILITY
     Dosage: UNK
     Route: 065
  6. DIGOXIN. [Interacting]
     Active Substance: DIGOXIN
     Dosage: 0.125 MILLIGRAM, QD
     Route: 048
  7. MIDAZOLAM. [Concomitant]
     Active Substance: MIDAZOLAM
     Indication: SEDATIVE THERAPY
     Dosage: UNK
     Route: 065
  8. LINEZOLID. [Suspect]
     Active Substance: LINEZOLID
     Indication: PNEUMONIA
     Dosage: 600 MILLIGRAM EVERY 12 HOURS
     Route: 042
  9. DIGOXIN. [Interacting]
     Active Substance: DIGOXIN
     Indication: CARDIAC FAILURE CONGESTIVE
     Dosage: 0.25 MILLIGRAM, QD
     Route: 048
  10. DIGOXIN. [Interacting]
     Active Substance: DIGOXIN
     Dosage: 0.125 MILLIGRAM (EVERY 2 DAYS)
     Route: 048
  11. FENTANYL. [Concomitant]
     Active Substance: FENTANYL
     Indication: SEDATIVE THERAPY
     Dosage: UNK
     Route: 065
  12. MIDAZOLAM. [Concomitant]
     Active Substance: MIDAZOLAM
     Indication: ANALGESIC THERAPY
  13. MOXIFLOXACIN. [Concomitant]
     Active Substance: MOXIFLOXACIN
     Indication: EVIDENCE BASED TREATMENT
     Dosage: 400 MILLIGRAM, QD
     Route: 065

REACTIONS (3)
  - Drug level increased [Recovered/Resolved]
  - Thrombocytopenia [Recovered/Resolved]
  - Drug interaction [Recovered/Resolved]
